FAERS Safety Report 10182659 (Version 1)
Quarter: 2014Q2

REPORT INFORMATION
  Report Type: Spontaneous
  Country: US (occurrence: None)
  Receive Date: 20140519
  Receipt Date: 20140519
  Transmission Date: 20141212
  Serious: Yes (Disabling)
  Sender: FDA-Public Use
  Company Number: None

PATIENT
  Age: 39 Year
  Sex: Female
  Weight: 58.51 kg

DRUGS (3)
  1. PAXIL [Suspect]
     Indication: DEPRESSION
     Dosage: 1
     Route: 048
  2. PAXIL [Suspect]
     Indication: DEPRESSED MOOD
     Dosage: 1
     Route: 048
  3. PAXIL [Suspect]
     Indication: PANIC ATTACK
     Dosage: 1
     Route: 048

REACTIONS (10)
  - Insomnia [None]
  - Nervousness [None]
  - Dizziness [None]
  - Dry mouth [None]
  - Heart rate increased [None]
  - Chills [None]
  - Abdominal discomfort [None]
  - Hallucination [None]
  - Hunger [None]
  - Muscular weakness [None]
